FAERS Safety Report 13558402 (Version 1)
Quarter: 2017Q2

REPORT INFORMATION
  Report Type: Spontaneous
  Country: CA (occurrence: CA)
  Receive Date: 20170517
  Receipt Date: 20170517
  Transmission Date: 20170830
  Serious: Yes (Life-Threatening)
  Sender: FDA-Public Use
  Company Number: CA-TEVA-770183ACC

PATIENT
  Sex: Female
  Weight: 43 kg

DRUGS (3)
  1. CLARITHROMYCIN. [Suspect]
     Active Substance: CLARITHROMYCIN
     Indication: SINUSITIS
     Route: 048
  2. ADVIL COLD AND SINUS NOS [Concomitant]
  3. OMNARIS [Concomitant]
     Active Substance: CICLESONIDE

REACTIONS (9)
  - Depression [Recovered/Resolved]
  - Hypoacusis [Recovered/Resolved]
  - Flat affect [Recovered/Resolved]
  - Mental impairment [Recovered/Resolved]
  - Vision blurred [Recovered/Resolved]
  - Nausea [Recovered/Resolved]
  - Dissociation [Recovered/Resolved]
  - Confusional state [Recovered/Resolved]
  - Tachyphrenia [Recovered/Resolved]
